FAERS Safety Report 5660484-8 (Version None)
Quarter: 2008Q1

REPORT INFORMATION
  Report Type: 
  Country: None (occurrence: None)
  Receive Date: 20080214
  Receipt Date: 20071030
  Transmission Date: 20080703
  Serious: Yes (Hospitalization)
  Sender: FDA-Public Use
  Company Number: ALK_00440_2007

PATIENT
  Sex: Male
  Weight: 217 kg

DRUGS (5)
  1. VIVITROL [Suspect]
     Indication: ALCOHOLISM
     Dosage: (380 MG 1X/MONTH INTRAMUSCULAR)
     Route: 030
     Dates: start: 20070301
  2. LISINOPRIL [Concomitant]
  3. PAXIL [Concomitant]
  4. GEODON [Concomitant]
  5. TRILEPTAL [Concomitant]

REACTIONS (4)
  - BRONCHITIS [None]
  - CHRONIC OBSTRUCTIVE PULMONARY DISEASE [None]
  - INJECTION SITE REACTION [None]
  - PNEUMONIA [None]
